FAERS Safety Report 16998071 (Version 5)
Quarter: 2020Q3

REPORT INFORMATION
  Report Type: Spontaneous
  Country: PT (occurrence: PT)
  Receive Date: 20191106
  Receipt Date: 20200924
  Transmission Date: 20201102
  Serious: Yes (Hospitalization, Other)
  Sender: FDA-Public Use
  Company Number: PT-AUROBINDO-AUR-APL-2019-070272

PATIENT
  Age: 68 Year
  Sex: Female

DRUGS (6)
  1. ACETYLSALICYLIC ACID 100MG [Suspect]
     Active Substance: ASPIRIN
     Indication: PRODUCT USED FOR UNKNOWN INDICATION
     Dosage: 100 MILLIGRAM
     Route: 065
  2. IRBESARTAN 150 MG [Suspect]
     Active Substance: IRBESARTAN
     Indication: PRODUCT USED FOR UNKNOWN INDICATION
     Dosage: 150 MILLIGRAM
     Route: 065
  3. PARACETAMOL [Suspect]
     Active Substance: ACETAMINOPHEN
     Indication: PRODUCT USED FOR UNKNOWN INDICATION
     Dosage: UNK
     Route: 065
  4. SIMVASTATIN 20MG [Suspect]
     Active Substance: SIMVASTATIN
     Indication: PRODUCT USED FOR UNKNOWN INDICATION
     Dosage: 20 MILLIGRAM
     Route: 048
  5. ESOMEPRAZOLE 20MG [Suspect]
     Active Substance: ESOMEPRAZOLE
     Indication: PRODUCT USED FOR UNKNOWN INDICATION
     Dosage: 20 MILLIGRAM
     Route: 048
  6. FLUOXETINE [Suspect]
     Active Substance: FLUOXETINE HYDROCHLORIDE
     Indication: PRODUCT USED FOR UNKNOWN INDICATION
     Dosage: 20 MILLIGRAM
     Route: 048

REACTIONS (22)
  - Photophobia [Unknown]
  - Weight decreased [Unknown]
  - Abdominal distension [Unknown]
  - Phonophobia [Unknown]
  - Dyspepsia [Unknown]
  - Hyperhidrosis [Recovered/Resolved]
  - Abdominal pain upper [Unknown]
  - Therapeutic response decreased [Unknown]
  - Leukopenia [Recovered/Resolved]
  - Drug ineffective [Recovered/Resolved]
  - Diarrhoea [Not Recovered/Not Resolved]
  - Enteritis [Unknown]
  - Infection susceptibility increased [Recovered/Resolved]
  - Decreased appetite [Unknown]
  - Pyrexia [Unknown]
  - Normocytic anaemia [Recovering/Resolving]
  - Depression [Unknown]
  - Chronic gastritis [Recovered/Resolved]
  - Migraine [Recovered/Resolved]
  - Brucellosis [Recovered/Resolved]
  - Hypochromic anaemia [Recovering/Resolving]
  - Product use in unapproved indication [Unknown]
